FAERS Safety Report 5669802-8 (Version None)
Quarter: 2008Q1

REPORT INFORMATION
  Report Type: 
  Country: None (occurrence: None)
  Receive Date: 20080317
  Receipt Date: 20080304
  Transmission Date: 20080703
  Serious: Yes (Hospitalization)
  Sender: FDA-Public Use
  Company Number: FR-SANOFI-SYNTHELABO-A02200800307

PATIENT
  Sex: Male

DRUGS (3)
  1. TADENAN [Concomitant]
     Route: 048
  2. ALFUZOSIN WINTHROP [Suspect]
     Indication: BENIGN PROSTATIC HYPERPLASIA
     Route: 048
     Dates: start: 20080118, end: 20080118
  3. ZOFENOPRIL [Suspect]
     Indication: HYPERTENSION
     Route: 048

REACTIONS (5)
  - ASTHENIA [None]
  - HYPOTENSION [None]
  - HYPOTHERMIA [None]
  - RESPIRATORY DISORDER [None]
  - VOMITING [None]
